FAERS Safety Report 25540543 (Version 2)
Quarter: 2025Q3

REPORT INFORMATION
  Report Type: Other
  Country: US (occurrence: US)
  Receive Date: 20250710
  Receipt Date: 20250930
  Transmission Date: 20251020
  Serious: No
  Sender: TRAVERE THERAPEUTICS
  Company Number: US-TRAVERE-2025TVT01032

PATIENT
  Sex: Male

DRUGS (4)
  1. FILSPARI [Suspect]
     Active Substance: SPARSENTAN
     Indication: Focal segmental glomerulosclerosis
     Route: 048
  2. FILSPARI [Suspect]
     Active Substance: SPARSENTAN
     Indication: Alport^s syndrome
  3. FILSPARI [Suspect]
     Active Substance: SPARSENTAN
     Indication: Proteinuria
  4. FILSPARI [Suspect]
     Active Substance: SPARSENTAN
     Indication: Hepato-lenticular degeneration

REACTIONS (1)
  - Product use in unapproved indication [Unknown]
